FAERS Safety Report 6807891-5 (Version None)
Quarter: 2010Q2

REPORT INFORMATION
  Report Type: 
  Country: None (occurrence: None)
  Receive Date: 20100629
  Receipt Date: 20090406
  Transmission Date: 20101027
  Serious: No
  Sender: FDA-Public Use
  Company Number: US-PFIZER INC-2009162619

PATIENT
  Sex: Male
  Weight: 65.9 kg

DRUGS (15)
  1. TIKOSYN [Suspect]
     Indication: ATRIAL FIBRILLATION
     Dosage: 500 UG, 2X/DAY
     Dates: start: 20090126
  2. ACETYLSALICYLIC ACID [Concomitant]
     Indication: PAIN
     Dosage: UNK
  3. ATORVASTATIN [Concomitant]
     Indication: PAIN
     Dosage: UNK
  4. CARVEDILOL [Concomitant]
     Indication: PAIN
     Dosage: UNK
  5. PLAVIX [Concomitant]
     Indication: PAIN
     Dosage: UNK
  6. DIGOXIN [Concomitant]
     Indication: PAIN
     Dosage: UNK
  7. LOVENOX [Concomitant]
     Indication: PAIN
     Dosage: UNK
  8. ZETIA [Concomitant]
     Indication: PAIN
     Dosage: UNK
  9. GLYBURIDE [Concomitant]
     Indication: PAIN
     Dosage: UNK
  10. METFORMIN HYDROCHLORIDE [Concomitant]
     Indication: PAIN
     Dosage: UNK
  11. ACTOS [Concomitant]
     Indication: PAIN
     Dosage: UNK
  12. QUINAPRIL [Concomitant]
     Indication: PAIN
     Dosage: UNK
  13. WARFARIN SODIUM [Concomitant]
     Indication: PAIN
     Dosage: UNK
  14. DARVOCET [Concomitant]
     Indication: PAIN
     Dosage: UNK
  15. AMBIEN [Concomitant]
     Indication: SLEEP DISORDER
     Dosage: UNK

REACTIONS (1)
  - PARAESTHESIA [None]
